FAERS Safety Report 6222867-7 (Version None)
Quarter: 2009Q2

REPORT INFORMATION
  Report Type: 
  Country: None (occurrence: None)
  Receive Date: 20090611
  Receipt Date: 20090608
  Transmission Date: 20091009
  Serious: Yes (Hospitalization)
  Sender: FDA-Public Use
  Company Number: FR-BRISTOL-MYERS SQUIBB COMPANY-14653083

PATIENT
  Age: 82 Year
  Sex: Male

DRUGS (8)
  1. COAPROVEL FILM-COATED TABS [Suspect]
     Dosage: 1DF-1TABS:IRBESARTAN-300MG, HYDROCHLOROTHIAZIDE (DOSAGE WAS NOT SPECIFIED)
     Route: 048
     Dates: end: 20090315
  2. DIASTABOL [Concomitant]
  3. ACTOS [Concomitant]
  4. DAONIL [Concomitant]
  5. NICARDIPINE HCL [Concomitant]
     Dosage: 1DF-50 UNITS NOT MENTIONED
  6. KARDEGIC [Concomitant]
  7. EZETROL [Concomitant]
  8. MECIR [Concomitant]
     Dosage: 1DF-0.4 UNITS NOT MENTIONED

REACTIONS (2)
  - HYPOKALAEMIA [None]
  - HYPONATRAEMIA [None]
